FAERS Safety Report 24696118 (Version 1)
Quarter: 2024Q4

REPORT INFORMATION
  Report Type: Spontaneous
  Country: CN (occurrence: CN)
  Receive Date: 20241204
  Receipt Date: 20241204
  Transmission Date: 20250115
  Serious: Yes (Other)
  Sender: GLAND PHARMA LTD
  Company Number: CN-GLANDPHARMA-CN-2024GLNLIT01094

PATIENT
  Age: 75 Year
  Sex: Male

DRUGS (12)
  1. DEXAMETHASONE SODIUM PHOSPHATE [Suspect]
     Active Substance: DEXAMETHASONE SODIUM PHOSPHATE
     Indication: T-cell lymphoma
     Dosage: 15 MG/(M2. D)
     Route: 041
  2. DEXAMETHASONE SODIUM PHOSPHATE [Suspect]
     Active Substance: DEXAMETHASONE SODIUM PHOSPHATE
     Indication: Haemophagocytic lymphohistiocytosis
  3. RUXOLITINIB PHOSPHATE [Suspect]
     Active Substance: RUXOLITINIB PHOSPHATE
     Indication: T-cell lymphoma
     Route: 048
  4. RUXOLITINIB PHOSPHATE [Suspect]
     Active Substance: RUXOLITINIB PHOSPHATE
     Indication: Haemophagocytic lymphohistiocytosis
  5. ETOPOSIDE [Suspect]
     Active Substance: ETOPOSIDE
     Indication: T-cell lymphoma
     Route: 041
  6. ETOPOSIDE [Suspect]
     Active Substance: ETOPOSIDE
     Indication: Haemophagocytic lymphohistiocytosis
  7. GEMCITABINE HYDROCHLORIDE [Suspect]
     Active Substance: GEMCITABINE HYDROCHLORIDE
     Indication: T-cell lymphoma
     Route: 041
  8. GEMCITABINE HYDROCHLORIDE [Suspect]
     Active Substance: GEMCITABINE HYDROCHLORIDE
     Indication: Haemophagocytic lymphohistiocytosis
  9. PEGASPARGASE [Suspect]
     Active Substance: PEGASPARGASE
     Indication: T-cell lymphoma
     Dosage: 2500 IU/M2 (MAXIMUM DOSE 3750 IU/M2)
     Route: 030
  10. PEGASPARGASE [Suspect]
     Active Substance: PEGASPARGASE
     Indication: Haemophagocytic lymphohistiocytosis
  11. CISPLATIN [Suspect]
     Active Substance: CISPLATIN
     Indication: T-cell lymphoma
     Route: 042
  12. CISPLATIN [Suspect]
     Active Substance: CISPLATIN
     Indication: Haemophagocytic lymphohistiocytosis

REACTIONS (2)
  - Thrombocytopenia [Recovered/Resolved]
  - Product use in unapproved indication [Unknown]
